FAERS Safety Report 7154658-7 (Version None)
Quarter: 2010Q4

REPORT INFORMATION
  Report Type: 
  Country: None (occurrence: None)
  Receive Date: 20101214
  Receipt Date: 20091104
  Transmission Date: 20110411
  Serious: No
  Sender: FDA-Public Use
  Company Number: US-AMGEN-KDL372806

PATIENT

DRUGS (2)
  1. ENBREL [Suspect]
     Indication: PSORIATIC ARTHROPATHY
     Dosage: 25 MG, 2 TIMES/WK
     Route: 058
     Dates: start: 19981101
  2. METHOTREXATE [Concomitant]
     Dosage: 7.5 MG, QWK
     Route: 048
     Dates: start: 20090815

REACTIONS (4)
  - KIDNEY INFECTION [None]
  - PSORIATIC ARTHROPATHY [None]
  - SINUSITIS [None]
  - URINARY TRACT INFECTION [None]
